FAERS Safety Report 20669504 (Version 1)
Quarter: 2022Q2

REPORT INFORMATION
  Report Type: Report from Study
  Country: US (occurrence: US)
  Receive Date: 20220404
  Receipt Date: 20220404
  Transmission Date: 20220721
  Serious: No
  Sender: FDA-Public Use
  Company Number: US-NOVARTISTESTPH-NVSC2022US073777

PATIENT
  Age: 35 Year
  Sex: Female

DRUGS (1)
  1. PREDNISOLONE ACETATE [Suspect]
     Active Substance: PREDNISOLONE ACETATE
     Indication: Immune thrombocytopenia
     Dosage: UNK
     Route: 065

REACTIONS (12)
  - Fatigue [Unknown]
  - Cognitive disorder [Unknown]
  - Platelet disorder [Unknown]
  - Asthenia [Unknown]
  - Decreased interest [Unknown]
  - Appetite disorder [Unknown]
  - Feeling abnormal [Unknown]
  - Negative thoughts [Unknown]
  - Loss of personal independence in daily activities [Unknown]
  - Depression [Unknown]
  - Sleep disorder [Unknown]
  - Drug ineffective [Unknown]
